FAERS Safety Report 15443309 (Version 1)
Quarter: 2018Q3

REPORT INFORMATION
  Report Type: Spontaneous
  Country: US (occurrence: US)
  Receive Date: 20180928
  Receipt Date: 20180928
  Transmission Date: 20181010
  Serious: Yes (Other)
  Sender: FDA-Public Use
  Company Number: US-ASTRAZENECA-2018SF22853

PATIENT
  Age: 63 Year
  Sex: Female
  Weight: 63.5 kg

DRUGS (6)
  1. LIPITOR [Concomitant]
     Active Substance: ATORVASTATIN CALCIUM
  2. BYDUREON BCISE [Suspect]
     Active Substance: EXENATIDE
     Indication: GLYCOSYLATED HAEMOGLOBIN INCREASED
     Route: 058
     Dates: start: 20180920
  3. INSULIN [Concomitant]
     Active Substance: INSULIN NOS
  4. BYDUREON BCISE [Suspect]
     Active Substance: EXENATIDE
     Indication: BLOOD GLUCOSE INCREASED
     Route: 058
     Dates: start: 20180920
  5. BYETTA [Suspect]
     Active Substance: EXENATIDE
     Indication: BLOOD GLUCOSE INCREASED
     Route: 058
     Dates: start: 2009, end: 201111
  6. BYDUREON [Suspect]
     Active Substance: EXENATIDE
     Indication: BLOOD GLUCOSE INCREASED
     Route: 058
     Dates: start: 2015, end: 2015

REACTIONS (17)
  - Blood glucose decreased [Unknown]
  - Malaise [Unknown]
  - Muscular weakness [Recovered/Resolved]
  - Abdominal distension [Unknown]
  - Eye pain [Unknown]
  - Abdominal discomfort [Recovered/Resolved]
  - Blood glucose increased [Unknown]
  - Weight decreased [Recovered/Resolved]
  - Injection site mass [Recovered/Resolved]
  - Visual impairment [Unknown]
  - Asthenia [Unknown]
  - Diarrhoea [Recovered/Resolved]
  - Eye disorder [Unknown]
  - Glycosylated haemoglobin increased [Unknown]
  - Vomiting [Recovered/Resolved]
  - Weight increased [Unknown]
  - Photopsia [Unknown]

NARRATIVE: CASE EVENT DATE: 2009
